FAERS Safety Report 18010655 (Version 1)
Quarter: 2020Q3

REPORT INFORMATION
  Report Type: Spontaneous
  Country: NL (occurrence: NL)
  Receive Date: 20200711
  Receipt Date: 20200711
  Transmission Date: 20201103
  Serious: Yes (Other)
  Sender: FDA-Public Use
  Company Number: NL-TOLMAR, INC.-20NL021941

PATIENT
  Age: 65 Year
  Sex: Male

DRUGS (3)
  1. ELIGARD [Suspect]
     Active Substance: LEUPROLIDE ACETATE
     Indication: PROSTATE CANCER
     Route: 065
  2. DEGARELIX [Suspect]
     Active Substance: DEGARELIX
     Indication: PROSTATIC SPECIFIC ANTIGEN INCREASED
     Dosage: UNK
     Route: 065
  3. GOSERELIN [Suspect]
     Active Substance: GOSERELIN
     Indication: PROSTATIC SPECIFIC ANTIGEN INCREASED
     Route: 065

REACTIONS (4)
  - Drug ineffective [Unknown]
  - Concomitant disease progression [Unknown]
  - Prostatic specific antigen increased [Recovered/Resolved]
  - Blood testosterone increased [Recovered/Resolved]
